FAERS Safety Report 23913636 (Version 1)
Quarter: 2024Q2

REPORT INFORMATION
  Report Type: Spontaneous
  Country: US (occurrence: US)
  Receive Date: 20240529
  Receipt Date: 20240529
  Transmission Date: 20240716
  Serious: No
  Sender: FDA-Public Use
  Company Number: US-PADAGIS-2024PAD00906

PATIENT
  Sex: Female

DRUGS (3)
  1. ESTRADIOL VAGINAL [Suspect]
     Active Substance: ESTRADIOL
     Indication: Atrophic vulvovaginitis
     Dosage: UNK
     Route: 065
  2. ESTRADIOL VAGINAL [Suspect]
     Active Substance: ESTRADIOL
     Indication: Vulvovaginal dryness
     Dosage: UNK (ESTROGEN PATCH)
     Route: 065
  3. FEMRING [Concomitant]
     Active Substance: ESTRADIOL ACETATE
     Indication: Oestrogen therapy
     Dosage: UNK (FOR 10 YEARS)
     Route: 065

REACTIONS (2)
  - Dermal absorption impaired [Unknown]
  - Product prescribing issue [Unknown]
